FAERS Safety Report 26025587 (Version 1)
Quarter: 2025Q4

REPORT INFORMATION
  Report Type: Spontaneous
  Country: IN (occurrence: IN)
  Receive Date: 20251111
  Receipt Date: 20251111
  Transmission Date: 20260118
  Serious: Yes (Other)
  Sender: RANBAXY
  Company Number: IN-SUN PHARMACEUTICAL INDUSTRIES LTD-2025R1-506067

PATIENT
  Age: 32 Year
  Sex: Female

DRUGS (1)
  1. IMIQUIMOD [Suspect]
     Active Substance: IMIQUIMOD
     Indication: Vaginal dysplasia
     Dosage: UNK
     Route: 061

REACTIONS (2)
  - Necrosis [Unknown]
  - Lymphadenopathy [Recovered/Resolved]
